FAERS Safety Report 24152998 (Version 1)
Quarter: 2024Q3

REPORT INFORMATION
  Report Type: Spontaneous
  Country: FR (occurrence: FR)
  Receive Date: 20240730
  Receipt Date: 20240730
  Transmission Date: 20241017
  Serious: Yes (Other)
  Sender: AMGEN
  Company Number: FR-AMGEN-FRASP2024147468

PATIENT

DRUGS (4)
  1. BEVACIZUMAB [Suspect]
     Active Substance: BEVACIZUMAB
     Indication: Ovarian epithelial cancer
     Dosage: UNK (MAINTENANCE THERAPY)
     Route: 065
  2. TAMOXIFEN [Suspect]
     Active Substance: TAMOXIFEN
     Indication: Ovarian epithelial cancer
     Route: 065
  3. FULVESTRANT [Suspect]
     Active Substance: FULVESTRANT
     Indication: Ovarian epithelial cancer
     Route: 065
  4. MEGESTROL ACETATE [Suspect]
     Active Substance: MEGESTROL ACETATE
     Indication: Ovarian epithelial cancer
     Route: 065

REACTIONS (6)
  - Ovarian epithelial cancer [Unknown]
  - Ovarian cancer [Unknown]
  - Ovarian endometrioid carcinoma [Unknown]
  - Adenocarcinoma [Unknown]
  - Therapy partial responder [Unknown]
  - Arthralgia [Unknown]
